FAERS Safety Report 9417485 (Version 1)
Quarter: 2013Q3

REPORT INFORMATION
  Report Type: Spontaneous
  Country: DE (occurrence: None)
  Receive Date: 20130719
  Receipt Date: 20130719
  Transmission Date: 20140515
  Serious: Yes (Other)
  Sender: FDA-Public Use
  Company Number: GER/GER/13/0030696

PATIENT
  Sex: Female

DRUGS (2)
  1. IBUBETA 400 AKUT (IBUPROFEN) [Suspect]
     Indication: PRODUCT USED FOR UNKNOWN INDICATION
     Dosage: 4000MG, 1 IN 1 TOTAL, ORAL
     Route: 048
     Dates: start: 20130708
  2. PARACETAMOL (PARACETAMOL) [Suspect]
     Indication: PRODUCT USED FOR UNKNOWN INDICATION
     Dosage: 5 DOSAGE FORMS, ORAL
     Dates: start: 20130708

REACTIONS (1)
  - Drug abuse [None]
